FAERS Safety Report 12366902 (Version 2)
Quarter: 2016Q2

REPORT INFORMATION
  Report Type: Report from Study
  Country: US (occurrence: US)
  Receive Date: 20160513
  Receipt Date: 20160519
  Transmission Date: 20160815
  Serious: Yes (Hospitalization, Other)
  Sender: FDA-Public Use
  Company Number: US-ABBVIE-16P-163-1626158-00

PATIENT
  Sex: Male

DRUGS (2)
  1. MODERIBA [Concomitant]
     Active Substance: RIBAVIRIN
     Indication: CHRONIC HEPATITIS C
     Route: 048
     Dates: start: 20160322, end: 20160506
  2. VIEKIRA PAK [Suspect]
     Active Substance: DASABUVIR\OMBITASVIR\PARITAPREVIR\RITONAVIR
     Indication: CHRONIC HEPATITIS C
     Dosage: 2 PINK AND 1 BEIGE IN AM; 1 BEIGE IN PM
     Route: 048
     Dates: start: 20160322

REACTIONS (4)
  - Mood altered [Unknown]
  - Decreased appetite [Unknown]
  - Depression [Unknown]
  - Blood count abnormal [Unknown]
